FAERS Safety Report 4456933-3 (Version None)
Quarter: 2004Q3

REPORT INFORMATION
  Report Type: 
  Country: None (occurrence: None)
  Receive Date: 20040923
  Receipt Date: 20040729
  Transmission Date: 20050211
  Serious: Yes (Other)
  Sender: FDA-Public Use
  Company Number: BE-MERCK-0407BEL00054

PATIENT
  Age: 74 Year
  Sex: Male
  Weight: 78 kg

DRUGS (8)
  1. AMLODIPINE BESYLATE [Concomitant]
     Route: 048
  2. CAPTOPRIL [Concomitant]
     Route: 048
  3. FUROSEMIDE [Concomitant]
     Route: 048
  4. INSULIN [Concomitant]
     Indication: DIABETES MELLITUS INSULIN-DEPENDENT
     Route: 058
  5. IRBESARTAN [Concomitant]
     Route: 048
  6. METOPROLOL SUCCINATE [Concomitant]
     Route: 048
  7. MOLSIDOMINE [Concomitant]
     Route: 048
  8. ZOCOR [Suspect]
     Indication: HYPERCHOLESTEROLAEMIA
     Route: 048
     Dates: start: 20040629, end: 20040711

REACTIONS (2)
  - HYPOGLYCAEMIC COMA [None]
  - MYALGIA [None]
